FAERS Safety Report 6796416-9 (Version None)
Quarter: 2010Q2

REPORT INFORMATION
  Report Type: 
  Country: None (occurrence: None)
  Receive Date: 20100627
  Receipt Date: 20100615
  Transmission Date: 20101027
  Serious: Yes (Death, Hospitalization, Other)
  Sender: FDA-Public Use
  Company Number: TH-BRISTOL-MYERS SQUIBB COMPANY-15063662

PATIENT
  Age: 57 Year
  Sex: Male
  Weight: 41 kg

DRUGS (2)
  1. CETUXIMAB [Suspect]
     Indication: OESOPHAGEAL SQUAMOUS CELL CARCINOMA
     Dosage: CYC1 24FEB2010:500MG;CYC2 03MAR:325MG;CYC3 17MAR:250MG;CYC4 22MAR:250MG; CYC5 29MAR:200MG
     Route: 042
     Dates: start: 20100224, end: 20100329
  2. CISPLATIN [Suspect]
     Indication: OESOPHAGEAL SQUAMOUS CELL CARCINOMA
     Dosage: RECENT INF:17MAR2010
     Route: 042
     Dates: start: 20100224, end: 20100317

REACTIONS (3)
  - DIARRHOEA INFECTIOUS [None]
  - FEEDING TUBE COMPLICATION [None]
  - SEPTIC SHOCK [None]
